FAERS Safety Report 10563597 (Version 1)
Quarter: 2014Q4

REPORT INFORMATION
  Report Type: Report from Study
  Country: TW (occurrence: TW)
  Receive Date: 20141104
  Receipt Date: 20141104
  Transmission Date: 20150529
  Serious: Yes (Hospitalization)
  Sender: FDA-Public Use
  Company Number: TW-SA-2014SA146746

PATIENT
  Age: 68 Year
  Sex: Female

DRUGS (3)
  1. NOVOMIX [Concomitant]
     Active Substance: INSULIN ASPART
     Indication: DIABETES MELLITUS
     Dosage: 28/14U
  2. ALL OTHER THERAPEUTIC PRODUCTS [Concomitant]
     Active Substance: UNSPECIFIED INGREDIENT
     Indication: CORONARY ARTERY DISEASE
  3. PLAVIX [Suspect]
     Active Substance: CLOPIDOGREL BISULFATE
     Indication: ACUTE CORONARY SYNDROME
     Route: 048
     Dates: start: 200910

REACTIONS (3)
  - Basal ganglion degeneration [Recovered/Resolved]
  - Pyrexia [Recovered/Resolved]
  - Nephropathy [Recovered/Resolved]

NARRATIVE: CASE EVENT DATE: 20140906
